FAERS Safety Report 9780974 (Version 4)
Quarter: 2014Q1

REPORT INFORMATION
  Report Type: Report from Study
  Country: JP (occurrence: JP)
  Receive Date: 20131224
  Receipt Date: 20140227
  Transmission Date: 20141002
  Serious: Yes (Hospitalization, Other)
  Sender: FDA-Public Use
  Company Number: JP-CELGENEUS-087-21880-11060981

PATIENT
  Age: 78 Year
  Sex: Female

DRUGS (18)
  1. REVLIMID [Suspect]
     Indication: MYELODYSPLASTIC SYNDROME
     Dosage: 5 MILLIGRAM
     Route: 048
     Dates: start: 20110428, end: 20110518
  2. REVLIMID [Suspect]
     Dosage: 5 MILLIGRAM
     Route: 048
     Dates: start: 20110527, end: 20110609
  3. REVLIMID [Suspect]
     Dosage: 5 MILLIGRAM
     Route: 048
     Dates: start: 20110723, end: 20110729
  4. REVLIMID [Suspect]
     Route: 048
     Dates: start: 20110823, end: 20110909
  5. REVLIMID [Suspect]
     Route: 048
     Dates: start: 20110920, end: 20111010
  6. REVLIMID [Suspect]
     Route: 048
     Dates: start: 20111018, end: 20111107
  7. REVLIMID [Suspect]
     Route: 048
     Dates: start: 20111115, end: 20120525
  8. REVLIMID [Suspect]
     Route: 048
     Dates: start: 20120604, end: 20121123
  9. REVLIMID [Suspect]
     Route: 048
     Dates: start: 20121204, end: 20130617
  10. ZYLORIC [Concomitant]
     Indication: HYPERURICAEMIA
     Route: 048
  11. LAC-B [Concomitant]
     Indication: PROPHYLAXIS
     Route: 048
  12. EXJADE [Concomitant]
     Indication: IRON OVERLOAD
     Route: 048
  13. PREDNISOLONE [Concomitant]
     Indication: MYELODYSPLASTIC SYNDROME
     Route: 048
     Dates: start: 20101111
  14. PREDNISOLONE [Concomitant]
     Route: 048
  15. PREDNISOLONE [Concomitant]
     Route: 048
     Dates: start: 20130815
  16. PARIET [Concomitant]
     Indication: PROPHYLAXIS
     Route: 048
  17. SYAKUYAKUKANZOTO [Concomitant]
     Indication: MYELODYSPLASTIC SYNDROME
     Route: 048
  18. BAKTAR [Concomitant]
     Indication: PROPHYLAXIS
     Route: 048
     Dates: start: 20110428

REACTIONS (3)
  - Pulmonary tuberculosis [Unknown]
  - Thrombocytopenia [Not Recovered/Not Resolved]
  - Neutrophil count decreased [Not Recovered/Not Resolved]
